FAERS Safety Report 7645882-5 (Version None)
Quarter: 2011Q3

REPORT INFORMATION
  Report Type: 
  Country: None (occurrence: None)
  Receive Date: 20110729
  Receipt Date: 20110726
  Transmission Date: 20111222
  Serious: Yes (Hospitalization)
  Sender: FDA-Public Use
  Company Number: US-B.I. PHARMACEUTICALS,INC./RIDGEFIELD-2011-BP-16476BP

PATIENT
  Age: 81 Year
  Sex: Female

DRUGS (9)
  1. SYNTHROID [Concomitant]
     Dosage: 50 MCG
  2. ASPIRIN [Concomitant]
     Dosage: 81 MG
  3. IMDUR [Concomitant]
     Dosage: 60 MG
  4. LASIX [Concomitant]
     Dosage: 20 MG
  5. PRILOSEC [Concomitant]
     Dosage: 40 MG
  6. ALDACTONE [Concomitant]
  7. NORVASC [Concomitant]
     Dosage: 5 MG
  8. PRAVASTATIN [Concomitant]
     Dosage: 40 MG
  9. PRADAXA [Suspect]
     Indication: ATRIAL FIBRILLATION
     Dosage: 300 MG
     Route: 048
     Dates: start: 20110401, end: 20110623

REACTIONS (6)
  - MELAENA [None]
  - GASTRIC HAEMORRHAGE [None]
  - EROSIVE OESOPHAGITIS [None]
  - GASTROINTESTINAL HAEMORRHAGE [None]
  - ANAEMIA [None]
  - GASTRIC ULCER [None]
